FAERS Safety Report 8329538-1 (Version None)
Quarter: 2012Q2

REPORT INFORMATION
  Report Type: 
  Country: None (occurrence: None)
  Receive Date: 20120502
  Receipt Date: 20120426
  Transmission Date: 20120825
  Serious: No
  Sender: FDA-Public Use
  Company Number: US-PFIZER INC-2012099525

PATIENT
  Sex: Female

DRUGS (4)
  1. SOMA [Concomitant]
  2. LYRICA [Suspect]
     Dosage: 50 MG, 3X/DAY
  3. KLONOPIN [Concomitant]
  4. METHADONE [Concomitant]

REACTIONS (3)
  - PAIN [None]
  - ACTIVITIES OF DAILY LIVING IMPAIRED [None]
  - BEDRIDDEN [None]
